FAERS Safety Report 22005706 (Version 1)
Quarter: 2023Q1

REPORT INFORMATION
  Report Type: Spontaneous
  Country: ES (occurrence: ES)
  Receive Date: 20230217
  Receipt Date: 20230217
  Transmission Date: 20230418
  Serious: Yes (Other)
  Sender: FDA-Public Use
  Company Number: ES-AEMPS-1326714

PATIENT

DRUGS (5)
  1. ALBUTEROL\IPRATROPIUM [Suspect]
     Active Substance: ALBUTEROL\IPRATROPIUM
     Indication: Bronchitis
     Dosage: UNK
     Route: 048
     Dates: start: 20230126
  2. PARACETAMOL CINFA [Concomitant]
     Indication: Bronchitis
     Dosage: UNK
     Route: 048
     Dates: start: 20230125
  3. IBUPROFENO CINFA [Concomitant]
     Indication: Bronchitis
     Dosage: UNK, QD
     Route: 048
     Dates: start: 20230125
  4. PREDNISONE [Concomitant]
     Active Substance: PREDNISONE
     Indication: Bronchitis
     Dosage: 30 MG, UNK
     Route: 048
     Dates: start: 20230126
  5. AMOXICILINA + ACIDO CLAVULANICO CINFA [Concomitant]
     Indication: Bronchitis
     Dosage: UNK
     Route: 048
     Dates: start: 20230126

REACTIONS (5)
  - Dizziness [Recovered/Resolved]
  - Vomiting [Recovered/Resolved]
  - Vision blurred [Recovered/Resolved]
  - Product administration error [Recovered/Resolved]
  - Medication error [Recovered/Resolved]

NARRATIVE: CASE EVENT DATE: 20230126
